FAERS Safety Report 9335738 (Version 1)
Quarter: 2013Q2

REPORT INFORMATION
  Report Type: Spontaneous
  Country: US (occurrence: US)
  Receive Date: 20130607
  Receipt Date: 20130607
  Transmission Date: 20140414
  Serious: No
  Sender: FDA-Public Use
  Company Number: US-009507513-1305USA017146

PATIENT
  Sex: Male

DRUGS (8)
  1. JANUVIA [Suspect]
     Indication: TYPE 2 DIABETES MELLITUS
     Dosage: 50 MG, QD
     Route: 048
     Dates: start: 20130304, end: 20130520
  2. BENICAR [Concomitant]
  3. GEMFIBROZIL [Concomitant]
  4. ALLOPURINOL [Concomitant]
  5. DOXAZOSIN MESYLATE [Concomitant]
  6. SIMVASTATIN TABLETS, USP [Concomitant]
  7. LEVOXYL [Concomitant]
  8. CIALIS [Concomitant]

REACTIONS (2)
  - Vision blurred [Recovered/Resolved]
  - Fatigue [Recovered/Resolved]
